FAERS Safety Report 20083452 (Version 3)
Quarter: 2021Q4

REPORT INFORMATION
  Report Type: Spontaneous
  Country: PT (occurrence: PT)
  Receive Date: 20211118
  Receipt Date: 20211227
  Transmission Date: 20220303
  Serious: Yes (Hospitalization, Other)
  Sender: FDA-Public Use
  Company Number: PT-MYLANLABS-2021M1080294

PATIENT
  Age: 37 Year
  Sex: Female

DRUGS (5)
  1. NAPROXEN [Interacting]
     Active Substance: NAPROXEN
     Indication: Product used for unknown indication
     Dosage: 500 MILLIGRAM
     Route: 048
  2. NAPROXEN [Interacting]
     Active Substance: NAPROXEN
     Dosage: 10000 MILLIGRAM, TOTAL
     Route: 065
  3. DIETARY SUPPLEMENT [Interacting]
     Active Substance: DIETARY SUPPLEMENT
     Indication: Product used for unknown indication
     Dosage: UNK
     Route: 048
  4. CYCLOBENZAPRINE [Suspect]
     Active Substance: CYCLOBENZAPRINE
     Indication: Product used for unknown indication
     Dosage: 15 MILLIGRAM
     Route: 048
  5. CYCLOBENZAPRINE [Suspect]
     Active Substance: CYCLOBENZAPRINE
     Dosage: 1500 MILLIGRAM, TOTAL
     Route: 065

REACTIONS (6)
  - Toxicity to various agents [Recovered/Resolved]
  - Haemolytic anaemia [Recovered/Resolved]
  - Intentional overdose [Unknown]
  - Thrombocytopenia [Not Recovered/Not Resolved]
  - Serotonin syndrome [Recovered/Resolved]
  - Potentiating drug interaction [Unknown]
